FAERS Safety Report 7585649-X (Version None)
Quarter: 2011Q3

REPORT INFORMATION
  Report Type: 
  Country: None (occurrence: None)
  Receive Date: 20110701
  Receipt Date: 20110629
  Transmission Date: 20111222
  Serious: Yes (Death, Life-Threatening)
  Sender: FDA-Public Use
  Company Number: CN-B.I. PHARMACEUTICALS,INC./RIDGEFIELD-2011-CS-00365CS

PATIENT
  Age: 67 Year
  Sex: Male
  Weight: 52 kg

DRUGS (2)
  1. MUCOSOLVAN [Concomitant]
     Indication: POSTOPERATIVE CARE
     Dosage: 15 MG
     Route: 055
     Dates: start: 20110517, end: 20110518
  2. ATROVENT [Suspect]
     Indication: POSTOPERATIVE CARE
     Dosage: 500 MCG
     Route: 055
     Dates: start: 20110518, end: 20110518

REACTIONS (2)
  - ANAPHYLACTIC REACTION [None]
  - ASPHYXIA [None]
